FAERS Safety Report 18130756 (Version 17)
Quarter: 2025Q4

REPORT INFORMATION
  Report Type: Report from Study
  Country: US (occurrence: US)
  Receive Date: 20200810
  Receipt Date: 20251231
  Transmission Date: 20260117
  Serious: Yes (Other)
  Sender: TAKEDA
  Company Number: US-SHIRE-US202025288

PATIENT
  Age: 39 Year
  Sex: Male

DRUGS (6)
  1. ADVATE [Suspect]
     Active Substance: ANTIHEMOPHILIC FACTOR, HUMAN RECOMBINANT
     Indication: Product used for unknown indication
     Dosage: 4000 INTERNATIONAL UNIT, Q12H
  2. ADVATE [Suspect]
     Active Substance: ANTIHEMOPHILIC FACTOR, HUMAN RECOMBINANT
     Dosage: 8000 INTERNATIONAL UNIT
  3. ADVATE [Suspect]
     Active Substance: ANTIHEMOPHILIC FACTOR, HUMAN RECOMBINANT
     Dosage: 3000 INTERNATIONAL UNIT
  4. ADVATE [Suspect]
     Active Substance: ANTIHEMOPHILIC FACTOR, HUMAN RECOMBINANT
     Dosage: 4000 INTERNATIONAL UNIT
  5. ADVATE [Suspect]
     Active Substance: ANTIHEMOPHILIC FACTOR, HUMAN RECOMBINANT
     Dosage: 4000 INTERNATIONAL UNIT
  6. ADVATE [Suspect]
     Active Substance: ANTIHEMOPHILIC FACTOR, HUMAN RECOMBINANT
     Dosage: 2950 INTERNATIONAL UNIT

REACTIONS (18)
  - Gingival bleeding [Recovered/Resolved]
  - Wound haemorrhage [Unknown]
  - Pelvic haemorrhage [Unknown]
  - Procedural haemorrhage [Unknown]
  - Blood urine present [Recovered/Resolved]
  - Haematemesis [Unknown]
  - Catheter site haemorrhage [Unknown]
  - Gingival injury [Unknown]
  - Urinary tract infection [Unknown]
  - Skin irritation [Recovered/Resolved]
  - Peripheral swelling [Unknown]
  - Joint swelling [Unknown]
  - Infection [Unknown]
  - Arthralgia [Unknown]
  - Product dose omission issue [Unknown]
  - Vomiting [Unknown]
  - Nausea [Unknown]
  - Malaise [Unknown]

NARRATIVE: CASE EVENT DATE: 20200731
